FAERS Safety Report 7875899-7 (Version None)
Quarter: 2011Q4

REPORT INFORMATION
  Report Type: 
  Country: None (occurrence: None)
  Receive Date: 20111031
  Receipt Date: 20111026
  Transmission Date: 20120403
  Serious: Yes (Hospitalization)
  Sender: FDA-Public Use
  Company Number: DE-ROCHE-787122

PATIENT
  Sex: Male
  Weight: 60 kg

DRUGS (16)
  1. AVASTIN [Suspect]
     Route: 042
  2. FOLSAN [Concomitant]
     Dosage: TDD: 0.4
  3. NOVALGIN [Concomitant]
     Dosage: NOVALGIN DROPS TDD: 120 DROPS
  4. AVASTIN [Suspect]
     Indication: NON-SMALL CELL LUNG CANCER
     Dosage: ON DAY 1 AND THEN EVERY 3 WEEKS., LAST DOSE: 08 JUN 2011
     Route: 042
     Dates: start: 20110427, end: 20110629
  5. TORSEMIDE [Concomitant]
     Dates: start: 20110708
  6. PEMETREXED DISODIUM [Suspect]
     Route: 042
  7. MOVIPREP [Concomitant]
     Dates: start: 20110706, end: 20110913
  8. LAXOBERAL [Concomitant]
     Dosage: DAILY DOSE: 20 TOFP
     Dates: start: 20110923
  9. VFEND [Concomitant]
     Dates: start: 20110906, end: 20110923
  10. SIMVASTATIN [Concomitant]
     Dosage: TDD: 40 COMMENCED AT BASELINE.
  11. PEMETREXED DISODIUM [Suspect]
     Indication: NON-SMALL CELL LUNG CANCER
     Dosage: ON DAY 1 AND THEN EVERY 3 WEEKS., LAST DOSE: 08 JUN 2011, FORM: INFUSION
     Route: 042
     Dates: start: 20110427, end: 20110629
  12. PANTOPRAZOLE SODIUM [Concomitant]
     Dates: start: 20110905
  13. KALINOR [Concomitant]
     Dates: start: 20110730, end: 20110915
  14. ASPIRIN [Concomitant]
     Dosage: TDD: 100 COMMENCED FROM BASELINE.
  15. TAMSULOSIN HCL [Concomitant]
     Dosage: TDD: 0.4 TAKEN AT BASELINE.
  16. ALDACTONE [Concomitant]
     Dates: start: 20110907

REACTIONS (2)
  - PNEUMONIA [None]
  - PNEUMOTHORAX [None]
